FAERS Safety Report 8288309-5 (Version None)
Quarter: 2012Q2

REPORT INFORMATION
  Report Type: 
  Country: None (occurrence: None)
  Receive Date: 20120416
  Receipt Date: 20120409
  Transmission Date: 20120825
  Serious: No
  Sender: FDA-Public Use
  Company Number: CHPA2012US006371

PATIENT
  Age: 97 Year
  Sex: Female

DRUGS (1)
  1. VOLTAREN [Suspect]
     Indication: ARTHRITIS
     Dosage: UNK, DAILY
     Route: 061
     Dates: start: 20070101, end: 20120301

REACTIONS (3)
  - PAIN [None]
  - MOBILITY DECREASED [None]
  - REBOUND EFFECT [None]
